FAERS Safety Report 17318150 (Version 1)
Quarter: 2020Q1

REPORT INFORMATION
  Report Type: Spontaneous
  Country: US (occurrence: US)
  Receive Date: 20200124
  Receipt Date: 20200124
  Transmission Date: 20200409
  Serious: Yes (Other)
  Sender: FDA-Public Use
  Company Number: US-BAUSCH-BL-2019-064547

PATIENT
  Age: 67 Year
  Sex: Female
  Weight: 95.34 kg

DRUGS (2)
  1. APRISO [Suspect]
     Active Substance: MESALAMINE
     Indication: COLITIS ULCERATIVE
     Route: 065
     Dates: start: 201907, end: 2019
  2. APRISO [Suspect]
     Active Substance: MESALAMINE
     Dosage: RESTARTED DOSE
     Route: 065

REACTIONS (5)
  - Therapy cessation [Unknown]
  - Symptom recurrence [Unknown]
  - Colitis ulcerative [Unknown]
  - Inability to afford medication [Unknown]
  - Insurance issue [Unknown]

NARRATIVE: CASE EVENT DATE: 2019
